FAERS Safety Report 6433567-2 (Version None)
Quarter: 2009Q4

REPORT INFORMATION
  Report Type: 
  Country: None (occurrence: None)
  Receive Date: 20091106
  Receipt Date: 20091106
  Transmission Date: 20100525
  Serious: Yes (Life-Threatening)
  Sender: FDA-Public Use
  Company Number: None

PATIENT
  Age: 57 Year
  Sex: Male
  Weight: 47.5 kg

DRUGS (2)
  1. TAXOTERE [Suspect]
     Dosage: 75MG/M2 IV Q21 DAYS
     Route: 042
     Dates: start: 20090810
  2. APRICOXIB/PLACEBO 400MG PO DAILY [Suspect]
     Dosage: KIT # 110802 TRAGARA

REACTIONS (2)
  - NEUTROPHIL COUNT DECREASED [None]
  - WHITE BLOOD CELL COUNT DECREASED [None]
